FAERS Safety Report 8297436-8 (Version None)
Quarter: 2012Q2

REPORT INFORMATION
  Report Type: 
  Country: None (occurrence: None)
  Receive Date: 20120419
  Receipt Date: 20120413
  Transmission Date: 20120825
  Serious: Yes (Other)
  Sender: FDA-Public Use
  Company Number: US-PFIZER INC-2012093661

PATIENT

DRUGS (16)
  1. AZELASTINE [Concomitant]
     Dosage: UNK
  2. ZYFLO [Concomitant]
     Dosage: UNK
  3. SPIRIVA [Concomitant]
     Dosage: UNK
  4. FOSAMAX [Concomitant]
     Dosage: UNK
  5. ALVESCO [Concomitant]
     Dosage: UNK
  6. ADVAIR DISKUS 100/50 [Concomitant]
     Dosage: UNK
  7. NASACORT [Concomitant]
     Dosage: UNK
  8. DIGOXIN [Concomitant]
     Dosage: UNK
  9. CARDIZEM [Concomitant]
     Dosage: UNK
  10. DETROL LA [Suspect]
     Dosage: 4 MG, 1X/DAY
     Route: 048
  11. ZOCOR [Concomitant]
     Dosage: UNK
  12. ALBUTEROL [Concomitant]
     Dosage: UNK
  13. PULMICORT [Concomitant]
     Dosage: UNK
  14. PREVACID [Concomitant]
     Dosage: UNK
  15. ZYRTEC [Concomitant]
     Dosage: UNK
  16. FOLIC ACID [Concomitant]
     Dosage: UNK

REACTIONS (3)
  - ASTHMA [None]
  - FIBROMYALGIA [None]
  - AORTIC STENOSIS [None]
